FAERS Safety Report 4640018-7 (Version None)
Quarter: 2005Q1

REPORT INFORMATION
  Report Type: 
  Country: None (occurrence: None)
  Receive Date: 20050328
  Receipt Date: 20050103
  Transmission Date: 20050727
  Serious: No
  Sender: FDA-Public Use
  Company Number: USA050187393

PATIENT
  Sex: Male

DRUGS (1)
  1. STRATTERA [Suspect]
     Dosage: 80 MG
     Dates: start: 20041220

REACTIONS (2)
  - NAUSEA [None]
  - SOMNOLENCE [None]
